FAERS Safety Report 24538233 (Version 1)
Quarter: 2024Q4

REPORT INFORMATION
  Report Type: Spontaneous
  Country: NL (occurrence: NL)
  Receive Date: 20241023
  Receipt Date: 20241023
  Transmission Date: 20250114
  Serious: Yes (Hospitalization, Other)
  Sender: SANDOZ
  Company Number: NL-002147023-PHHY2019NL027897

PATIENT
  Age: 41 Year
  Sex: Male
  Weight: 109 kg

DRUGS (9)
  1. AMLODIPINE [Suspect]
     Active Substance: AMLODIPINE BESYLATE
     Indication: Product used for unknown indication
     Dosage: 10 MG, QD ( DOSAGE FORM: TABLET)
     Route: 048
     Dates: start: 20111124, end: 20111223
  2. METHSCOPOLAMINE BROMIDE [Suspect]
     Active Substance: METHSCOPOLAMINE BROMIDE
     Indication: Product used for unknown indication
     Dosage: 10 MG, QD (30 MG, DOSAGE FORM: DRAGEES)
     Route: 048
     Dates: start: 20091209, end: 20111221
  3. DOMPERIDONE [Suspect]
     Active Substance: DOMPERIDONE
     Indication: Product used for unknown indication
     Dosage: 10 MG, QD (30 MG)
     Route: 048
     Dates: start: 20091209, end: 20111221
  4. METOPROLOL SUCCINATE [Suspect]
     Active Substance: METOPROLOL SUCCINATE
     Indication: Product used for unknown indication
     Dosage: 50 MG, QD (DOSAGE FORM: TABLET )
     Route: 048
  5. NORTRIPTYLINE [Suspect]
     Active Substance: NORTRIPTYLINE
     Indication: Product used for unknown indication
     Dosage: 50 MG, QD (100 MG, DOSAGE FORM: TABLET)
     Route: 048
  6. PANTOPRAZOLE [Suspect]
     Active Substance: PANTOPRAZOLE
     Indication: Product used for unknown indication
     Dosage: 40 MG, QD (DOSAGE FORM: TABLET)
     Route: 048
  7. SEROQUEL [Suspect]
     Active Substance: QUETIAPINE FUMARATE
     Indication: Product used for unknown indication
     Dosage: 25 MG, QD (25 MG, DOSAGE FORM: FILM COATED TABLET)
     Route: 048
     Dates: start: 20111124, end: 20111221
  8. OXAZEPAM [Concomitant]
     Active Substance: OXAZEPAM
     Indication: Product used for unknown indication
     Dosage: 10 MG, UNK (DOSAGE FORM: TABLET)
     Route: 048
  9. PANADOL ATROSE [Concomitant]
     Indication: Product used for unknown indication
     Dosage: 1000 MG, QD (3000 MG, DOSAGE FORM: TABLET)
     Route: 048
     Dates: start: 20111124, end: 20111221

REACTIONS (3)
  - Drug abuse [Unknown]
  - Abdominal discomfort [Not Recovered/Not Resolved]
  - Depression [Unknown]

NARRATIVE: CASE EVENT DATE: 20090815
